FAERS Safety Report 7247653-0 (Version None)
Quarter: 2011Q1

REPORT INFORMATION
  Report Type: 
  Country: None (occurrence: None)
  Receive Date: 20110127
  Receipt Date: 20101214
  Transmission Date: 20110831
  Serious: Yes (Death, Hospitalization, Other)
  Sender: FDA-Public Use
  Company Number: US-BAXTER-2008BH005139

PATIENT
  Age: 55 Year
  Sex: Male
  Weight: 113 kg

DRUGS (71)
  1. HEPARIN SODIUM INJECTION [Suspect]
     Route: 033
     Dates: start: 20050601, end: 20080213
  2. HEPARIN SODIUM INJECTION [Suspect]
     Route: 033
     Dates: start: 20050601, end: 20080213
  3. HEPARIN SODIUM INJECTION [Suspect]
     Route: 042
     Dates: start: 20080201
  4. HEPARIN SODIUM INJECTION [Suspect]
     Route: 042
     Dates: start: 20080201
  5. HEPARIN SODIUM INJECTION [Suspect]
     Route: 033
     Dates: start: 20050601, end: 20080213
  6. HEPARIN SODIUM INJECTION [Suspect]
     Route: 033
     Dates: start: 20070918, end: 20080212
  7. LISINOPRIL [Concomitant]
     Indication: PRODUCT USED FOR UNKNOWN INDICATION
     Route: 048
  8. INSULIN [Concomitant]
     Indication: PRODUCT USED FOR UNKNOWN INDICATION
     Route: 065
  9. CEFAZOLIN [Concomitant]
     Indication: PRODUCT USED FOR UNKNOWN INDICATION
     Route: 065
  10. CLINDAMYCIN [Concomitant]
     Indication: PRODUCT USED FOR UNKNOWN INDICATION
     Route: 065
  11. HEPARIN SODIUM INJECTION [Suspect]
     Indication: ANTICOAGULANT THERAPY
     Route: 033
     Dates: start: 20050601, end: 20080213
  12. HEPARIN SODIUM INJECTION [Suspect]
     Route: 033
     Dates: start: 20050601, end: 20080213
  13. HEPARIN SODIUM INJECTION [Suspect]
     Route: 033
     Dates: start: 20070918, end: 20080212
  14. SALINE [Concomitant]
     Indication: PRODUCT USED FOR UNKNOWN INDICATION
     Route: 065
  15. PROMETHAZINE [Concomitant]
     Indication: PRODUCT USED FOR UNKNOWN INDICATION
     Route: 065
  16. IRON SULFATETHIAMIN COMPOUND TAB [Concomitant]
     Indication: PRODUCT USED FOR UNKNOWN INDICATION
     Route: 065
  17. HEPARIN SODIUM INJECTION [Suspect]
     Route: 033
     Dates: start: 20050601, end: 20080213
  18. HEPARIN SODIUM INJECTION [Suspect]
     Route: 033
     Dates: start: 20050601, end: 20080213
  19. HEPARIN SODIUM INJECTION [Suspect]
     Route: 033
     Dates: start: 20070918, end: 20080212
  20. HEPARIN SODIUM INJECTION [Suspect]
     Route: 033
     Dates: start: 20070918, end: 20080212
  21. HEPARIN SODIUM INJECTION [Suspect]
     Route: 065
     Dates: start: 20080213
  22. HEPARIN SODIUM INJECTION [Suspect]
     Route: 065
     Dates: start: 20080213
  23. DIATX [Concomitant]
     Indication: PRODUCT USED FOR UNKNOWN INDICATION
     Route: 048
  24. MAGNESIUM OXIDE [Concomitant]
     Indication: PRODUCT USED FOR UNKNOWN INDICATION
     Route: 065
  25. HEPARIN SODIUM INJECTION [Suspect]
     Route: 033
     Dates: start: 20050601, end: 20080213
  26. HEPARIN SODIUM INJECTION [Suspect]
     Route: 033
     Dates: start: 20050601, end: 20080213
  27. HEPARIN SODIUM INJECTION [Suspect]
     Route: 033
     Dates: start: 20050601, end: 20080213
  28. HEPARIN SODIUM INJECTION [Suspect]
     Route: 033
     Dates: start: 20070918, end: 20080212
  29. HEPARIN SODIUM INJECTION [Suspect]
     Route: 033
     Dates: start: 20070918, end: 20080212
  30. HEPARIN SODIUM INJECTION [Suspect]
     Route: 065
     Dates: start: 20071115
  31. PRILOSEC [Concomitant]
     Indication: PRODUCT USED FOR UNKNOWN INDICATION
     Route: 065
  32. GENTAMICIN [Concomitant]
     Indication: PRODUCT USED FOR UNKNOWN INDICATION
     Route: 065
  33. HEPARIN SODIUM INJECTION [Suspect]
     Indication: PROPHYLAXIS
     Route: 033
     Dates: start: 20050601, end: 20080213
  34. HEPARIN SODIUM INJECTION [Suspect]
     Route: 033
     Dates: start: 20050601, end: 20080213
  35. HEPARIN SODIUM INJECTION [Suspect]
     Route: 033
     Dates: start: 20050601, end: 20080213
  36. HEPARIN SODIUM INJECTION [Suspect]
     Route: 033
     Dates: start: 20050601, end: 20080213
  37. FOSRENOL [Concomitant]
     Indication: PRODUCT USED FOR UNKNOWN INDICATION
     Route: 065
  38. MULTI-VITAMINS [Concomitant]
     Indication: PRODUCT USED FOR UNKNOWN INDICATION
     Route: 048
  39. THEVA M [Concomitant]
     Indication: PRODUCT USED FOR UNKNOWN INDICATION
     Route: 048
  40. RENAGEL [Concomitant]
     Indication: PRODUCT USED FOR UNKNOWN INDICATION
     Route: 065
  41. HEPARIN SODIUM INJECTION [Suspect]
     Route: 033
     Dates: start: 20070918, end: 20080212
  42. HEPARIN SODIUM INJECTION [Suspect]
     Route: 033
     Dates: start: 20070918, end: 20080212
  43. HEPARIN SODIUM INJECTION [Suspect]
     Route: 033
     Dates: start: 20070918, end: 20080212
  44. HEPARIN SODIUM INJECTION [Suspect]
     Route: 033
     Dates: start: 20070918, end: 20080212
  45. HEPARIN SODIUM INJECTION [Suspect]
     Route: 033
     Dates: start: 20070918, end: 20080212
  46. HEPARIN SODIUM INJECTION [Suspect]
     Route: 033
     Dates: start: 20070918, end: 20080212
  47. HEPARIN SODIUM INJECTION [Suspect]
     Route: 033
     Dates: start: 20070923
  48. HEPARIN SODIUM INJECTION [Suspect]
     Route: 065
     Dates: start: 20071115
  49. COREG [Concomitant]
     Indication: PRODUCT USED FOR UNKNOWN INDICATION
     Route: 048
  50. HUMULIN N [Concomitant]
     Indication: DIABETES MELLITUS
     Route: 058
  51. EPOGEN [Concomitant]
     Indication: PRODUCT USED FOR UNKNOWN INDICATION
     Route: 058
  52. HECTOROL [Concomitant]
     Indication: PRODUCT USED FOR UNKNOWN INDICATION
     Route: 048
  53. BIAXIN XL [Concomitant]
     Indication: PRODUCT USED FOR UNKNOWN INDICATION
     Route: 048
  54. HEPARIN SODIUM INJECTION [Suspect]
     Route: 033
     Dates: start: 20050601, end: 20080213
  55. HEPARIN SODIUM INJECTION [Suspect]
     Route: 033
     Dates: start: 20050601, end: 20080213
  56. HEPARIN SODIUM INJECTION [Suspect]
     Route: 033
     Dates: start: 20070918, end: 20080212
  57. HEPARIN SODIUM INJECTION [Suspect]
     Route: 033
     Dates: start: 20070918, end: 20080212
  58. ESOMEPRAZOLE [Concomitant]
     Indication: PRODUCT USED FOR UNKNOWN INDICATION
     Route: 048
  59. PREGABALIN [Concomitant]
     Indication: PRODUCT USED FOR UNKNOWN INDICATION
     Route: 048
  60. ANCEF [Concomitant]
     Indication: PRODUCT USED FOR UNKNOWN INDICATION
     Route: 065
  61. HYDROCODONE [Concomitant]
     Indication: PRODUCT USED FOR UNKNOWN INDICATION
     Route: 065
  62. HEPARIN SODIUM INJECTION [Suspect]
     Route: 033
     Dates: start: 20070918, end: 20080212
  63. HEPARIN SODIUM INJECTION [Suspect]
     Route: 033
     Dates: start: 20070918, end: 20080212
  64. HEPARIN SODIUM INJECTION [Suspect]
     Route: 033
     Dates: start: 20070918, end: 20080212
  65. HEPARIN SODIUM INJECTION [Suspect]
     Route: 033
     Dates: start: 20070918, end: 20080212
  66. HEPARIN SODIUM INJECTION [Suspect]
     Route: 033
     Dates: start: 20070923
  67. IRON [Concomitant]
     Indication: PRODUCT USED FOR UNKNOWN INDICATION
     Route: 048
  68. CARAFATE [Concomitant]
     Indication: PRODUCT USED FOR UNKNOWN INDICATION
     Route: 065
  69. ZOFRAN [Concomitant]
     Indication: PRODUCT USED FOR UNKNOWN INDICATION
     Route: 065
  70. PROCRIT [Concomitant]
     Indication: PRODUCT USED FOR UNKNOWN INDICATION
     Route: 065
  71. RENAGEL [Concomitant]
     Route: 065

REACTIONS (41)
  - PERITONITIS BACTERIAL [None]
  - DIARRHOEA [None]
  - VOMITING [None]
  - PALLOR [None]
  - BACK PAIN [None]
  - CONDITION AGGRAVATED [None]
  - OEDEMA PERIPHERAL [None]
  - HYPOMAGNESAEMIA [None]
  - ANAEMIA [None]
  - ARRHYTHMIA [None]
  - ABDOMINAL PAIN [None]
  - FIBRIN D DIMER [None]
  - MEDICAL DEVICE COMPLICATION [None]
  - THROMBOCYTOPENIA [None]
  - GASTROINTESTINAL HAEMORRHAGE [None]
  - HYPOTENSION [None]
  - PYREXIA [None]
  - HAEMATOCHEZIA [None]
  - CHILLS [None]
  - WHEEZING [None]
  - THIRST [None]
  - RENAL FAILURE CHRONIC [None]
  - TYPE 2 DIABETES MELLITUS [None]
  - RESPIRATORY FAILURE [None]
  - HAEMATEMESIS [None]
  - NAUSEA [None]
  - HYPERHIDROSIS [None]
  - HEADACHE [None]
  - CARDIAC ARREST [None]
  - SEPTIC SHOCK [None]
  - DYSPNOEA [None]
  - MALAISE [None]
  - HYPOKALAEMIA [None]
  - OEDEMA [None]
  - PERITONITIS [None]
  - TOOTH ABSCESS [None]
  - COUGH [None]
  - ASTHENIA [None]
  - DECREASED APPETITE [None]
  - SYNCOPE [None]
  - PLEURAL EFFUSION [None]
